FAERS Safety Report 18552644 (Version 20)
Quarter: 2022Q4

REPORT INFORMATION
  Report Type: Report from Study
  Country: IE (occurrence: IE)
  Receive Date: 20201127
  Receipt Date: 20221215
  Transmission Date: 20230112
  Serious: Yes (Hospitalization, Other)
  Sender: FDA-Public Use
  Company Number: IE-ABBVIE-20K-229-3633203-00

PATIENT
  Age: 64 Year
  Sex: Male

DRUGS (22)
  1. CARBIDOPA\LEVODOPA [Suspect]
     Active Substance: CARBIDOPA\LEVODOPA
     Indication: Parkinson^s disease
     Dosage: 1 CASSETTE, CONTINUOUS
     Route: 050
     Dates: start: 20131122, end: 20131202
  2. CARBIDOPA\LEVODOPA [Suspect]
     Active Substance: CARBIDOPA\LEVODOPA
     Dosage: 1 CASSETTE, CONTINUOUS
     Route: 050
     Dates: start: 20131202, end: 20201116
  3. CARBIDOPA\LEVODOPA [Suspect]
     Active Substance: CARBIDOPA\LEVODOPA
     Dosage: 1 CASSETTE; MORNING DOSE- 5ML?CONTINUOUS
     Route: 050
     Dates: start: 20201116
  4. CARBIDOPA\LEVODOPA [Suspect]
     Active Substance: CARBIDOPA\LEVODOPA
     Dosage: MORNING DOSE- 4.7 ML
     Route: 050
     Dates: start: 2022, end: 2022
  5. CARBIDOPA\LEVODOPA [Suspect]
     Active Substance: CARBIDOPA\LEVODOPA
     Dosage: CONTINUOUS DOSE 1.1ML/HR; MORNING DOSE 4.3ML?CONTINUOUS
     Route: 050
     Dates: start: 20220209, end: 2022
  6. CARBIDOPA\LEVODOPA [Suspect]
     Active Substance: CARBIDOPA\LEVODOPA
     Dosage: FREQUENCY: CONTINUOUS
     Route: 050
     Dates: start: 2022
  7. CARBIDOPA\LEVODOPA [Suspect]
     Active Substance: CARBIDOPA\LEVODOPA
     Route: 050
     Dates: start: 2022, end: 20220901
  8. CARBIDOPA\LEVODOPA [Suspect]
     Active Substance: CARBIDOPA\LEVODOPA
     Dosage: CONTINUOUS DOSE 1.1ML/HR; MORNING DOSE 4 ML
     Route: 050
     Dates: start: 202209, end: 2022
  9. DOMERID [Concomitant]
     Indication: Product used for unknown indication
     Dosage: TIME INTERVAL: 0.33333333 DAYS
  10. DOMERID [Concomitant]
     Indication: Product used for unknown indication
  11. AZILECT [Concomitant]
     Active Substance: RASAGILINE MESYLATE
     Indication: Product used for unknown indication
  12. ZOPICLONE [Concomitant]
     Active Substance: ZOPICLONE
     Indication: Product used for unknown indication
  13. ESOMEPRAZOLE [Concomitant]
     Active Substance: ESOMEPRAZOLE
     Indication: Product used for unknown indication
  14. RAMIPRIL [Concomitant]
     Active Substance: RAMIPRIL
     Indication: Product used for unknown indication
  15. SYMMETREL [Concomitant]
     Active Substance: AMANTADINE HYDROCHLORIDE
     Indication: Product used for unknown indication
  16. Venex [Concomitant]
     Indication: Product used for unknown indication
  17. Venex [Concomitant]
     Indication: Product used for unknown indication
  18. CHOLECALCIFEROL [Concomitant]
     Active Substance: CHOLECALCIFEROL
     Indication: Product used for unknown indication
     Route: 048
  19. EXELON PATCH [Concomitant]
     Active Substance: RIVASTIGMINE
     Indication: Product used for unknown indication
     Route: 061
  20. BENSERAZIDE HYDROCHLORIDE\LEVODOPA [Concomitant]
     Active Substance: BENSERAZIDE HYDROCHLORIDE\LEVODOPA
     Indication: Product used for unknown indication
     Route: 048
     Dates: start: 20201116, end: 202202
  21. BENSERAZIDE HYDROCHLORIDE\LEVODOPA [Concomitant]
     Active Substance: BENSERAZIDE HYDROCHLORIDE\LEVODOPA
     Indication: Product used for unknown indication
     Dosage: 50/12.5MG INCREASED
     Route: 048
     Dates: start: 202202
  22. ZOPICLONE [Concomitant]
     Active Substance: ZOPICLONE
     Indication: Product used for unknown indication
     Dosage: 3.75 MG

REACTIONS (19)
  - Embedded device [Recovered/Resolved]
  - Off label use [Not Recovered/Not Resolved]
  - Terminal state [Not Recovered/Not Resolved]
  - Embedded device [Not Recovered/Not Resolved]
  - Enteral nutrition [Not Recovered/Not Resolved]
  - Bedridden [Not Recovered/Not Resolved]
  - Musculoskeletal stiffness [Not Recovered/Not Resolved]
  - Device loosening [Recovered/Resolved]
  - Stoma site erythema [Not Recovered/Not Resolved]
  - Device dislocation [Recovered/Resolved]
  - Device dislocation [Recovered/Resolved]
  - Dyskinesia [Recovered/Resolved]
  - Stoma site inflammation [Recovered/Resolved]
  - Stoma site discharge [Recovered/Resolved]
  - Stoma site erythema [Recovered/Resolved]
  - On and off phenomenon [Recovered/Resolved]
  - Dyskinesia [Not Recovered/Not Resolved]
  - Device dislocation [Not Recovered/Not Resolved]
  - Stoma site discharge [Not Recovered/Not Resolved]

NARRATIVE: CASE EVENT DATE: 20200101
